FAERS Safety Report 17051220 (Version 1)
Quarter: 2019Q4

REPORT INFORMATION
  Report Type: Spontaneous
  Country: CA (occurrence: CA)
  Receive Date: 20191120
  Receipt Date: 20191120
  Transmission Date: 20200122
  Serious: Yes (Death, Hospitalization, Other)
  Sender: FDA-Public Use
  Company Number: CA-AMGEN-CANSP2019189430

PATIENT
  Age: 54 Year
  Sex: Female

DRUGS (2)
  1. PANITUMUMAB [Suspect]
     Active Substance: PANITUMUMAB
     Dosage: 50% DOSE REDUCED, CYCLICAL
     Route: 065
     Dates: start: 2018
  2. PANITUMUMAB [Suspect]
     Active Substance: PANITUMUMAB
     Indication: COLON CANCER METASTATIC
     Dosage: UNK, CYCLICAL
     Route: 065
     Dates: start: 201802, end: 201802

REACTIONS (9)
  - Hypokalaemia [Unknown]
  - Hypoxia [Unknown]
  - Hypomagnesaemia [Unknown]
  - Cough [Unknown]
  - Small intestinal obstruction [Unknown]
  - Hypoalbuminaemia [Unknown]
  - Respiratory failure [Fatal]
  - Acute respiratory distress syndrome [Fatal]
  - Pyrexia [Unknown]

NARRATIVE: CASE EVENT DATE: 2018
